FAERS Safety Report 9783379 (Version 1)
Quarter: 2013Q4

REPORT INFORMATION
  Report Type: Spontaneous
  Country: NL (occurrence: NL)
  Receive Date: 20131226
  Receipt Date: 20131226
  Transmission Date: 20140711
  Serious: Yes (Hospitalization)
  Sender: FDA-Public Use
  Company Number: NL-TEVA-450960ISR

PATIENT
  Age: 63 Year
  Sex: Female
  Weight: 65 kg

DRUGS (4)
  1. METHOTREXATE [Suspect]
     Indication: RHEUMATOID ARTHRITIS
     Dosage: EXTRA INFO: WEEKLY 10 MGR
     Route: 058
     Dates: start: 2002
  2. ADALIMUMAB INJVLST 50MG/ML [Interacting]
     Indication: RHEUMATOID ARTHRITIS
     Dosage: 2 TIMES A MONTH 1 PIECE, EXTRA INFO: 1X/2 WEEKS 40 MGR. PER SUBCUTANE INJECTION
     Route: 058
     Dates: start: 20030814, end: 20120313
  3. NON SPECIFIED DRUG [Concomitant]
  4. ORAL ANTIDIABETICS [Interacting]
     Indication: DIABETES MELLITUS

REACTIONS (2)
  - Breast cancer [Recovering/Resolving]
  - Drug interaction [Recovering/Resolving]
